FAERS Safety Report 7813011-0 (Version None)
Quarter: 2011Q4

REPORT INFORMATION
  Report Type: 
  Country: None (occurrence: None)
  Receive Date: 20111013
  Receipt Date: 20111004
  Transmission Date: 20120403
  Serious: Yes (Other)
  Sender: FDA-Public Use
  Company Number: GB-ASTRAZENECA-2011SE59699

PATIENT
  Age: 34 Year
  Sex: Male

DRUGS (1)
  1. XYLOCAINE [Suspect]
     Indication: LESION EXCISION

REACTIONS (7)
  - BODY TEMPERATURE INCREASED [None]
  - PALPITATIONS [None]
  - PALLOR [None]
  - HEART RATE INCREASED [None]
  - HYPERHIDROSIS [None]
  - SYNCOPE [None]
  - BLOOD PRESSURE DECREASED [None]
